FAERS Safety Report 14853346 (Version 2)
Quarter: 2018Q2

REPORT INFORMATION
  Report Type: Spontaneous
  Country: CA (occurrence: CA)
  Receive Date: 20180507
  Receipt Date: 20180605
  Transmission Date: 20180711
  Serious: No
  Sender: FDA-Public Use
  Company Number: CA-CELLTRION INC.-2017CA017602

PATIENT

DRUGS (6)
  1. INFLECTRA [Suspect]
     Active Substance: INFLIXIMAB-DYYB
     Dosage: 600 MG, CYCLIC (AT 0,2 WEEKS, THEN EVERY 4 WEEKS)
     Route: 042
     Dates: start: 20180525
  2. INFLECTRA [Suspect]
     Active Substance: INFLIXIMAB-DYYB
     Indication: COLITIS ULCERATIVE
     Dosage: 400 MG, CYCLIC (AT 0,2 WEEKS, THEN EVERY 4 WEEKS)
     Route: 042
     Dates: start: 20170905, end: 20180110
  3. METHOTREXATE. [Concomitant]
     Active Substance: METHOTREXATE
     Indication: COLITIS ULCERATIVE
     Dosage: 15 MG
  4. INFLECTRA [Suspect]
     Active Substance: INFLIXIMAB-DYYB
     Dosage: 600 MG, CYCLIC (AT 0,2 WEEKS, THEN EVERY 4 WEEKS)
     Route: 042
     Dates: start: 20180402
  5. INFLECTRA [Suspect]
     Active Substance: INFLIXIMAB-DYYB
     Dosage: 600 MG, CYCLIC (AT 0,2 WEEKS, THEN EVERY 4 WEEKS)
     Route: 042
     Dates: start: 20180123
  6. TRAMADOL. [Concomitant]
     Active Substance: TRAMADOL
     Dosage: UNK, PRN

REACTIONS (2)
  - Product use issue [Unknown]
  - Incorrect drug administration duration [Unknown]
